FAERS Safety Report 9420626 (Version 1)
Quarter: 2013Q3

REPORT INFORMATION
  Report Type: Spontaneous
  Country: JP (occurrence: None)
  Receive Date: 20130723
  Receipt Date: 20130723
  Transmission Date: 20140515
  Serious: Yes (Other)
  Sender: FDA-Public Use
  Company Number: 2009JP000074

PATIENT
  Age: 44 Year
  Sex: Female
  Weight: 44 kg

DRUGS (14)
  1. PROGRAF (TACROLIMUS) CAPSULE [Suspect]
     Indication: LUPUS NEPHRITIS
     Route: 048
     Dates: start: 20070313
  2. PREDONINE /00016201/ [Suspect]
     Indication: LUPUS NEPHRITIS
     Route: 048
     Dates: end: 20070618
  3. LIPITOR (ATORVASTATIN CALCIUM) TABLET [Concomitant]
  4. FOSAMAC (ALNEDRONATE SODIUM) TABLET [Concomitant]
  5. SELOKEN/ 00376902/ (METOPROLOL TARTRATE) TABLET [Concomitant]
  6. BLOPRESS (CANDESARTAN CILEXETIL) (TABLET) [Concomitant]
  7. PERSANTIN-L (DYPRIDDAMOLE) SLOW RELEASE CAPSULES [Concomitant]
  8. HYLAEIN (HYALURONATE SODIUM) EYE DROP [Concomitant]
  9. ACINON (NIZATIDINE) PER ORAL NOS [Concomitant]
  10. LASIX / 00032601 (FUROSEMIDE)PER ORAL NOS [Concomitant]
  11. DIOVAN (VALSARTAN) TABLET [Concomitant]
  12. TANTRIL (IMIDAPRILHYDROCHLORIDE) TABLET [Concomitant]
  13. FERROMIA / 00023520/ (FERROUS SODIUM CITRATE) PER ORAL NOS [Concomitant]
  14. ADALAT CR (NIFEDIPINE) [Concomitant]

REACTIONS (6)
  - Osteonecrosis [None]
  - Hypertension [None]
  - Blood albumin decreased [None]
  - Blood calcium decreased [None]
  - White blood cell count increased [None]
  - Protein total decreased [None]
